FAERS Safety Report 13799878 (Version 1)
Quarter: 2017Q3

REPORT INFORMATION
  Report Type: Spontaneous
  Country: US (occurrence: US)
  Receive Date: 20170727
  Receipt Date: 20170727
  Transmission Date: 20171127
  Serious: No
  Sender: FDA-Public Use
  Company Number: US-JNJFOC-20170520668

PATIENT
  Sex: Male

DRUGS (3)
  1. ROGAINE [Suspect]
     Active Substance: MINOXIDIL
     Indication: PRODUCT USED FOR UNKNOWN INDICATION
     Dosage: ONE BOTTLE OF LIQUID, A WHILE BACK
     Route: 065
  2. PRAVASTATIN. [Concomitant]
     Active Substance: PRAVASTATIN
     Indication: BLOOD CHOLESTEROL INCREASED
     Dosage: 6 MONTHS
     Route: 065
  3. ROGAINE [Suspect]
     Active Substance: MINOXIDIL
     Route: 065

REACTIONS (1)
  - Alopecia [Unknown]
